FAERS Safety Report 15792227 (Version 1)
Quarter: 2019Q1

REPORT INFORMATION
  Report Type: Spontaneous
  Country: US (occurrence: US)
  Receive Date: 20190107
  Receipt Date: 20190107
  Transmission Date: 20190417
  Serious: Yes (Other)
  Sender: FDA-Public Use
  Company Number: US-AUROBINDO-AUR-APL-2018-064066

PATIENT
  Age: 86 Year
  Sex: Female

DRUGS (3)
  1. ASPIRIN                            /00002701/ [Suspect]
     Active Substance: ASPIRIN
     Indication: ACUTE MYOCARDIAL INFARCTION
     Dosage: UNK
     Route: 065
  2. CLOPIDOGREL [Suspect]
     Active Substance: CLOPIDOGREL BISULFATE
     Indication: ACUTE MYOCARDIAL INFARCTION
     Dosage: UNK
     Route: 065
  3. HEPARIN [Suspect]
     Active Substance: HEPARIN SODIUM
     Indication: ACUTE MYOCARDIAL INFARCTION
     Dosage: 80 U/KG
     Route: 065

REACTIONS (4)
  - Peripheral ischaemia [Unknown]
  - Vascular pseudoaneurysm [Recovered/Resolved]
  - Atrial fibrillation [Unknown]
  - Mass [Unknown]
